FAERS Safety Report 8906449 (Version 1)
Quarter: 2012Q4

REPORT INFORMATION
  Report Type: Spontaneous
  Country: US (occurrence: None)
  Receive Date: 20121108
  Receipt Date: 20121108
  Transmission Date: 20130627
  Serious: Yes (Hospitalization)
  Sender: FDA-Public Use
  Company Number: 2012100128

PATIENT
  Age: 34 Year
  Sex: Male

DRUGS (2)
  1. ZOLPIDEM [Suspect]
     Indication: CIRCADIAN RHYTHM SLEEP DISORDER
  2. LITHIUM [Concomitant]

REACTIONS (9)
  - Grand mal convulsion [None]
  - Alcohol use [None]
  - Vision blurred [None]
  - Headache [None]
  - Anxiety [None]
  - Feeling jittery [None]
  - Drug dependence [None]
  - Drug withdrawal syndrome [None]
  - Self-medication [None]
